FAERS Safety Report 9729517 (Version 2)
Quarter: 2013Q4

REPORT INFORMATION
  Report Type: Spontaneous
  Country: US (occurrence: US)
  Receive Date: 20131204
  Receipt Date: 20131204
  Transmission Date: 20140711
  Serious: No
  Sender: FDA-Public Use
  Company Number: US-GILEAD-2009-0021514

PATIENT
  Sex: Female
  Weight: 63.05 kg

DRUGS (16)
  1. LETAIRIS [Suspect]
     Indication: PULMONARY ARTERIAL HYPERTENSION
     Route: 048
     Dates: start: 20090224
  2. WARFARIN [Concomitant]
  3. TOPROL XL [Concomitant]
  4. FLECAINIDE ACETATE [Concomitant]
  5. HYZAAR [Concomitant]
  6. FUROSEMIDE [Concomitant]
  7. OXYGEN [Concomitant]
  8. PROVENTIL [Concomitant]
  9. VERAMYST [Concomitant]
  10. ADVAIR [Concomitant]
  11. DIAZEPAM [Concomitant]
  12. MIRAPEX [Concomitant]
  13. TUMS [Concomitant]
  14. PREVACID [Concomitant]
  15. VITAMIN A + D [Concomitant]
  16. APPUREX [Concomitant]

REACTIONS (5)
  - Feeling abnormal [Unknown]
  - Dizziness [Unknown]
  - Dizziness [Unknown]
  - Hypotension [Unknown]
  - Local swelling [Unknown]
